FAERS Safety Report 18314180 (Version 1)
Quarter: 2020Q3

REPORT INFORMATION
  Report Type: Report from Study
  Country: BR (occurrence: BR)
  Receive Date: 20200925
  Receipt Date: 20200925
  Transmission Date: 20201103
  Serious: Yes (Death, Hospitalization, Other)
  Sender: FDA-Public Use
  Company Number: NVSC2020BR261048

PATIENT
  Age: 53 Year
  Sex: Female

DRUGS (1)
  1. VOTRIENT [Suspect]
     Active Substance: PAZOPANIB HYDROCHLORIDE
     Indication: METASTATIC RENAL CELL CARCINOMA
     Dosage: 2 DF, QD
     Route: 065
     Dates: start: 202007

REACTIONS (9)
  - Nodule [Unknown]
  - Urinary tract infection [Unknown]
  - Anaemia [Unknown]
  - Neoplasm malignant [Unknown]
  - Hydronephrosis [Unknown]
  - Pneumonia [Unknown]
  - Dyspnoea [Unknown]
  - Lung neoplasm malignant [Fatal]
  - Respiratory failure [Unknown]

NARRATIVE: CASE EVENT DATE: 20200915
